FAERS Safety Report 7485337-4 (Version None)
Quarter: 2011Q2

REPORT INFORMATION
  Report Type: 
  Country: None (occurrence: None)
  Receive Date: 20110517
  Receipt Date: 20101217
  Transmission Date: 20111010
  Serious: Yes (Other)
  Sender: FDA-Public Use
  Company Number: US-BAYER-2010-007040

PATIENT
  Sex: Female

DRUGS (1)
  1. MIRENA [Suspect]
     Indication: CONTRACEPTION
     Dosage: DAILY DOSE 20 ?G
     Route: 015
     Dates: start: 20081114

REACTIONS (6)
  - ABDOMINAL PAIN UPPER [None]
  - ACNE [None]
  - MENORRHAGIA [None]
  - NAUSEA [None]
  - WEIGHT INCREASED [None]
  - AMENORRHOEA [None]
